FAERS Safety Report 15782135 (Version 1)
Quarter: 2019Q1

REPORT INFORMATION
  Report Type: Spontaneous
  Country: US (occurrence: US)
  Receive Date: 20190102
  Receipt Date: 20190102
  Transmission Date: 20190417
  Serious: No
  Sender: FDA-Public Use
  Company Number: US-GLAXOSMITHKLINE-US2018233551

PATIENT
  Age: 75 Year
  Sex: Female

DRUGS (2)
  1. PREVACID 24 HR [Suspect]
     Active Substance: LANSOPRAZOLE
     Indication: ABDOMINAL DISCOMFORT
  2. PREVACID 24 HR [Suspect]
     Active Substance: LANSOPRAZOLE
     Indication: GASTROOESOPHAGEAL REFLUX DISEASE
     Dosage: I DONT TAKE IT EVERY DAY SOMETIMES I CAN GO THREE DAYS ON ONE PILLS

REACTIONS (5)
  - Therapeutic response unexpected [Unknown]
  - Drug effective for unapproved indication [Unknown]
  - Incorrect product administration duration [Unknown]
  - Product use in unapproved indication [Unknown]
  - Product use issue [Unknown]
